FAERS Safety Report 25631869 (Version 4)
Quarter: 2025Q4

REPORT INFORMATION
  Report Type: Spontaneous
  Country: US (occurrence: US)
  Receive Date: 20250801
  Receipt Date: 20251017
  Transmission Date: 20260117
  Serious: Yes (Disabling, Other)
  Sender: REGENERON
  Company Number: US-REGENERON PHARMACEUTICALS, INC.-2025-121723

PATIENT
  Sex: Male

DRUGS (2)
  1. EYLEA HD [Suspect]
     Active Substance: AFLIBERCEPT
     Indication: Myopic chorioretinal degeneration
     Dosage: 8 MG, SINGLE INTO LEFT EYE; SAMPLE, FORMULATION: HD (VIAL)
     Dates: start: 20250717, end: 20250717
  2. AVASTIN [Concomitant]
     Active Substance: BEVACIZUMAB
     Indication: Myopic chorioretinal degeneration
     Dosage: EVERY 4 TO 6 MONTHS

REACTIONS (9)
  - Blindness unilateral [Recovering/Resolving]
  - Myopic chorioretinal degeneration [Not Recovered/Not Resolved]
  - Condition aggravated [Not Recovered/Not Resolved]
  - Impaired work ability [Unknown]
  - Impaired driving ability [Unknown]
  - Uveitis [Unknown]
  - Pupillary disorder [Unknown]
  - Vitreous floaters [Not Recovered/Not Resolved]
  - Off label use [Unknown]

NARRATIVE: CASE EVENT DATE: 20250101
